FAERS Safety Report 7271648-4 (Version None)
Quarter: 2011Q1

REPORT INFORMATION
  Report Type: 
  Country: None (occurrence: None)
  Receive Date: 20110203
  Receipt Date: 20110126
  Transmission Date: 20110831
  Serious: No
  Sender: FDA-Public Use
  Company Number: US-JNJFOC-20110200500

PATIENT
  Sex: Female
  Weight: 53.07 kg

DRUGS (5)
  1. FENTANYL-100 [Suspect]
     Indication: PAIN
     Route: 062
  2. SYNTHROID [Concomitant]
     Indication: THYROID DISORDER
     Route: 048
  3. ESTROPIPATE [Concomitant]
     Indication: PRODUCT USED FOR UNKNOWN INDICATION
     Dosage: TABLET/EVERY OTHER DAY
     Route: 048
  4. UNKNOWN MEDICATION [Concomitant]
     Indication: BONE DISORDER
     Route: 048
  5. LEXAPRO [Concomitant]
     Indication: PRODUCT USED FOR UNKNOWN INDICATION
     Route: 048

REACTIONS (4)
  - FALL [None]
  - DRUG DOSE OMISSION [None]
  - FACE INJURY [None]
  - LACERATION [None]
